FAERS Safety Report 5634837-8 (Version None)
Quarter: 2008Q1

REPORT INFORMATION
  Report Type: 
  Country: None (occurrence: None)
  Receive Date: 20080222
  Receipt Date: 20080220
  Transmission Date: 20080703
  Serious: Yes (Life-Threatening)
  Sender: FDA-Public Use
  Company Number: JP-ASTRAZENECA-2008AP00594

PATIENT
  Age: 20190 Day
  Sex: Male
  Weight: 82 kg

DRUGS (4)
  1. XYLOCAINE TOPICAL FILM [Suspect]
     Indication: GASTROINTESTINAL TUBE INSERTION
     Dosage: DOSE UNKNOWN
     Route: 049
     Dates: start: 20080123, end: 20080123
  2. ATROPINE SULFATE [Suspect]
     Indication: ANAESTHETIC PREMEDICATION
     Route: 030
     Dates: start: 20080123, end: 20080123
  3. ATARAX [Suspect]
     Indication: ANAESTHETIC PREMEDICATION
     Route: 030
     Dates: start: 20080123, end: 20080123
  4. PENTAZOCINE LACTATE [Suspect]
     Indication: ANAESTHETIC PREMEDICATION
     Route: 030
     Dates: start: 20080123, end: 20080123

REACTIONS (2)
  - BRONCHOSPASM [None]
  - DYSPNOEA [None]
